FAERS Safety Report 9113537 (Version 6)
Quarter: 2018Q3

REPORT INFORMATION
  Report Type: Spontaneous
  Country: US (occurrence: US)
  Receive Date: 20130131
  Receipt Date: 20180709
  Transmission Date: 20181010
  Serious: No
  Sender: FDA-Public Use
  Company Number: US-PFIZER INC-2013038067

PATIENT
  Age: 79 Year
  Sex: Female
  Weight: 100 kg

DRUGS (31)
  1. ACTOS [Concomitant]
     Active Substance: PIOGLITAZONE HYDROCHLORIDE
     Dosage: UNK
  2. FISH OIL [Concomitant]
     Active Substance: FISH OIL
     Dosage: UNK
     Route: 048
  3. LANSOPRAZOLE. [Concomitant]
     Active Substance: LANSOPRAZOLE
     Dosage: 30 MG, 1X/DAY(BEFORE A MEAL)
     Route: 048
     Dates: start: 20160204
  4. CLONIDINE HCL [Concomitant]
     Active Substance: CLONIDINE HYDROCHLORIDE
     Dosage: 0.1 MG, 2X/DAY
     Route: 048
     Dates: start: 20160204
  5. LYRICA [Concomitant]
     Active Substance: PREGABALIN
     Dosage: 50 MG, 3X/DAY
     Route: 048
  6. MELATONIN [Concomitant]
     Active Substance: MELATONIN
     Dosage: UNK
     Route: 048
  7. NOVOLOG [Concomitant]
     Active Substance: INSULIN ASPART
     Dosage: UNK (AS DIRECTED)
     Dates: start: 20150408
  8. VITAMIN C [Concomitant]
     Active Substance: ASCORBIC ACID
     Dosage: UNK
     Route: 048
  9. ALBUTEROL SULFATE. [Concomitant]
     Active Substance: ALBUTEROL SULFATE
     Dosage: 3 ML, UNK (2.5 MG/3 ML(0.083%, EVERY 6 HOURS)
     Route: 045
  10. DIFLUCAN [Concomitant]
     Active Substance: FLUCONAZOLE
     Dosage: 200 MG, 1X/DAY (X3 DAYS)
     Route: 048
     Dates: start: 20160229
  11. INSULIN [Concomitant]
     Active Substance: INSULIN NOS
     Dosage: UNK (1/2 ML 30 GAUGE X 5/16, BEFORE MEALS)
     Dates: start: 20151026
  12. LANTUS [Concomitant]
     Active Substance: INSULIN GLARGINE
     Dosage: 50 IU, 1X/DAY (100 UNIT/ML)
     Route: 058
     Dates: start: 20160204
  13. MUCINEX [Concomitant]
     Active Substance: GUAIFENESIN
     Dosage: 600 MG, UNK
     Route: 048
  14. PROAIR HFA [Concomitant]
     Active Substance: ALBUTEROL SULFATE
     Dosage: UNK UNK, AS NEEDED (90 MCG, 1?2 PUFFS, EVERY 6 HOURS)
     Route: 055
     Dates: start: 20160204
  15. LANTUS [Concomitant]
     Active Substance: INSULIN GLARGINE
     Dosage: UNK (USE AS DIRECTED)
     Dates: start: 20150408
  16. VITAMIN D3 [Concomitant]
     Active Substance: CHOLECALCIFEROL
     Dosage: UNK
     Route: 048
  17. ACTOS [Concomitant]
     Active Substance: PIOGLITAZONE HYDROCHLORIDE
     Dosage: 30 MG, 1X/DAY
     Route: 048
     Dates: start: 20160505
  18. BENAZEPRIL [Concomitant]
     Active Substance: BENAZEPRIL HYDROCHLORIDE
     Dosage: 20 MG, 1X/DAY
     Route: 048
     Dates: start: 20160204
  19. HUMALOG [Concomitant]
     Active Substance: INSULIN LISPRO
     Dosage: UNK (AS DIRECTED)
     Dates: start: 20141028
  20. MELOXICAM. [Concomitant]
     Active Substance: MELOXICAM
     Dosage: 7.5 MG, 2X/DAY
     Route: 048
     Dates: start: 20160523
  21. OMEPRAZOLE. [Concomitant]
     Active Substance: OMEPRAZOLE
     Dosage: 20 MG, 1X/DAY (BEFORE A MEAL)
     Route: 048
     Dates: start: 20160204
  22. PROBIOTIC [Concomitant]
     Active Substance: PROBIOTICS NOS
     Dosage: UNK
     Route: 048
  23. ZITHROMAX [Concomitant]
     Active Substance: AZITHROMYCIN DIHYDRATE
     Dosage: UNK (TAKE 2 TABLETS (500 MG)FOR 1 DAY, THEN 1 TABLET (250 MG)ONCE DAILY FOR 4 DAYS)
     Route: 048
     Dates: start: 20160229
  24. CELEBREX [Suspect]
     Active Substance: CELECOXIB
     Indication: ARTHRITIS
     Dosage: 200 MG, 2X/DAY
     Route: 048
  25. CELEBREX [Suspect]
     Active Substance: CELECOXIB
     Dosage: 200 MG, 1X/DAY (ONE DAILY EVERY DAY IN THE MORNING BY MOUTH)
     Route: 048
  26. CITALOPRAM [Concomitant]
     Active Substance: CITALOPRAM HYDROBROMIDE
     Dosage: 20 MG, 1X/DAY (IN THE EVENING FOR 90 DAYS)
     Route: 048
     Dates: start: 20160204
  27. FLONASE [Concomitant]
     Active Substance: FLUTICASONE PROPIONATE
     Dosage: UNK UNK, DAILY(INHALE 2 PUFFS)
     Route: 045
  28. NOVOLOG [Concomitant]
     Active Substance: INSULIN ASPART
     Dosage: 18 IU, UNK (100 UNIT/ML, PER MEAL)
     Route: 058
  29. NOVOLOG [Concomitant]
     Active Substance: INSULIN ASPART
     Dosage: 16 IU, UNK (PER MEAL)
     Route: 058
  30. CINNAMON. [Concomitant]
     Active Substance: CINNAMON
     Dosage: 500 MG, UNK
     Route: 048
  31. INSULIN [Concomitant]
     Active Substance: INSULIN NOS
     Dosage: 1 ML, UNK (USE AS DIRECTED)
     Dates: start: 20140918

REACTIONS (1)
  - Drug ineffective [Unknown]
